FAERS Safety Report 8795920 (Version 2)
Quarter: 2012Q4

REPORT INFORMATION
  Report Type: 
  Country: DE (occurrence: DE)
  Receive Date: 20120920
  Receipt Date: 20120928
  Transmission Date: 20130627
  Serious: Yes (Other)
  Sender: FDA-Public Use
  Company Number: DE-BAYER-2012-095833

PATIENT
  Age: 51 Year
  Sex: Male

DRUGS (8)
  1. ACETYLSALICYLIC ACID({=100 MG) [Suspect]
     Dosage: 100 mg/day
  2. CLOPIDOGREL [Suspect]
     Indication: ACUTE CORONARY SYNDROME
     Dosage: 600 mg, UNK
  3. CLOPIDOGREL [Suspect]
     Indication: ACUTE CORONARY SYNDROME
     Dosage: 75 mg/day
  4. ENOXAPARIN SODIUM [Suspect]
     Indication: ACUTE CORONARY SYNDROME
  5. ENOXAPARIN SODIUM [Suspect]
     Indication: ACUTE CORONARY SYNDROME
     Dosage: 70 mg, BID
  6. ROPIVACAINE [Concomitant]
  7. IBUPROFEN [Concomitant]
  8. OXYCODONE [Concomitant]

REACTIONS (4)
  - Acute coronary syndrome [None]
  - Acute myocardial infarction [None]
  - Drug effect decreased [None]
  - Drug effect decreased [None]
